FAERS Safety Report 4581543-7 (Version None)
Quarter: 2005Q1

REPORT INFORMATION
  Report Type: 
  Country: None (occurrence: None)
  Receive Date: 20050127
  Receipt Date: 20041025
  Transmission Date: 20050727
  Serious: No
  Sender: FDA-Public Use
  Company Number: US_0410107398

PATIENT
  Age: 10 Year
  Sex: Male
  Weight: 30 kg

DRUGS (1)
  1. STRATTERA [Suspect]
     Indication: ATTENTION DEFICIT/HYPERACTIVITY DISORDER
     Dosage: 40 MG/2DAY
     Dates: start: 20020101, end: 20041022

REACTIONS (3)
  - HEADACHE [None]
  - PHARYNGITIS STREPTOCOCCAL [None]
  - PRESCRIBED OVERDOSE [None]
